FAERS Safety Report 16014243 (Version 5)
Quarter: 2020Q1

REPORT INFORMATION
  Report Type: Report from Study
  Country: US (occurrence: US)
  Receive Date: 20190227
  Receipt Date: 20200113
  Transmission Date: 20200409
  Serious: No
  Sender: FDA-Public Use
  Company Number: PHEH2019US008432

PATIENT
  Age: 39 Year
  Sex: Female

DRUGS (2)
  1. GILENYA [Suspect]
     Active Substance: FINGOLIMOD HYDROCHLORIDE
     Indication: MULTIPLE SCLEROSIS
     Dosage: 0.5 MG, QD
     Route: 048
     Dates: start: 20170531
  2. GILENYA [Suspect]
     Active Substance: FINGOLIMOD HYDROCHLORIDE
     Dosage: 0.5 MG, QD
     Route: 048

REACTIONS (8)
  - Night sweats [Unknown]
  - Pain in extremity [Unknown]
  - Asthenia [Unknown]
  - Balance disorder [Unknown]
  - Product dose omission [Unknown]
  - Malaise [Unknown]
  - Back pain [Unknown]
  - Aphonia [Unknown]

NARRATIVE: CASE EVENT DATE: 20190220
